FAERS Safety Report 16913835 (Version 1)
Quarter: 2019Q4

REPORT INFORMATION
  Report Type: Spontaneous
  Country: FR (occurrence: FR)
  Receive Date: 20191014
  Receipt Date: 20191014
  Transmission Date: 20200122
  Serious: Yes (Hospitalization)
  Sender: FDA-Public Use
  Company Number: FR-PFIZER INC-2019435669

PATIENT
  Age: 95 Year
  Sex: Female
  Weight: 83 kg

DRUGS (4)
  1. EXFORGE [Suspect]
     Active Substance: AMLODIPINE BESYLATE\VALSARTAN
     Indication: BLOOD PRESSURE MANAGEMENT
     Dosage: 1 DF (5 MG/160 MG), 1X/DAY
     Route: 048
  2. FUROSEMIDE ARROW [Suspect]
     Active Substance: FUROSEMIDE
     Indication: DIURETIC THERAPY
     Dosage: 40 MG, 1X/DAY
  3. ACEBUTOLOL ARROW [Suspect]
     Active Substance: ACEBUTOLOL
     Indication: BLOOD PRESSURE MANAGEMENT
     Dosage: 200 MG, 1X/DAY
     Route: 048
     Dates: end: 201809
  4. ALDACTONE [Suspect]
     Active Substance: SPIRONOLACTONE
     Indication: BLOOD PRESSURE MANAGEMENT
     Dosage: 25 MG, 1X/DAY
     Route: 048
     Dates: end: 201809

REACTIONS (2)
  - Bradycardia [Recovered/Resolved]
  - Hypotension [Recovered/Resolved]

NARRATIVE: CASE EVENT DATE: 201809
